FAERS Safety Report 7509675-1 (Version None)
Quarter: 2011Q2

REPORT INFORMATION
  Report Type: 
  Country: None (occurrence: None)
  Receive Date: 20110527
  Receipt Date: 20110517
  Transmission Date: 20111010
  Serious: Yes (Hospitalization)
  Sender: FDA-Public Use
  Company Number: US-JNJFOC-20110507919

PATIENT
  Sex: Female

DRUGS (3)
  1. ALL OTHER THERAPEUTIC PRODUCTS [Concomitant]
     Indication: MULTIPLE ALLERGIES
  2. BENADRYL [Suspect]
     Route: 048
  3. BENADRYL [Suspect]
     Indication: MULTIPLE ALLERGIES
     Route: 048

REACTIONS (3)
  - HYPERTENSION [None]
  - RASH [None]
  - URTICARIA [None]
